FAERS Safety Report 4639484-2 (Version None)
Quarter: 2005Q2

REPORT INFORMATION
  Report Type: 
  Country: None (occurrence: None)
  Receive Date: 20050419
  Receipt Date: 20050411
  Transmission Date: 20051028
  Serious: Yes (Death)
  Sender: FDA-Public Use
  Company Number: 2005UW05585

PATIENT
  Age: 30 Year
  Sex: Male

DRUGS (5)
  1. SEROQUEL [Suspect]
     Indication: BIPOLAR DISORDER
  2. DEPAKOTE [Concomitant]
  3. LITHIUM CARBONATE [Concomitant]
  4. ATIVAN [Concomitant]
  5. BLEACH [Concomitant]

REACTIONS (7)
  - ABDOMINAL PAIN [None]
  - CARDIAC ARREST [None]
  - CONSTIPATION [None]
  - DRUG TOXICITY [None]
  - RESPIRATORY ARREST [None]
  - THERAPY NON-RESPONDER [None]
  - VOMITING [None]
